FAERS Safety Report 6266739-0 (Version None)
Quarter: 2009Q3

REPORT INFORMATION
  Report Type: 
  Country: None (occurrence: None)
  Receive Date: 20090714
  Receipt Date: 20070608
  Transmission Date: 20100115
  Serious: Yes (Other)
  Sender: FDA-Public Use
  Company Number: US-ASTRAZENECA-2006UW11204

PATIENT
  Age: 13805 Day
  Sex: Female
  Weight: 106.6 kg

DRUGS (15)
  1. SEROQUEL [Suspect]
     Indication: DEPRESSION
     Dosage: 100 - 600 MG
     Route: 048
     Dates: start: 20020718
  2. SEROQUEL [Suspect]
     Route: 048
     Dates: start: 20040304
  3. ZYPREXA [Concomitant]
  4. FLOVENT [Concomitant]
     Route: 065
  5. COLACE [Concomitant]
     Route: 048
  6. ALBUTEROL [Concomitant]
  7. HUMALOG [Concomitant]
     Dosage: 20 UNITS, 30 UNITS, 34 UNITS, 54 UNITS FLUCTUATING
     Route: 058
  8. TOPAMAX [Concomitant]
     Route: 065
  9. SINGULAIR [Concomitant]
     Route: 065
  10. ZOCOR [Concomitant]
     Route: 065
  11. PROMETHAZINE [Concomitant]
     Route: 065
  12. METFORMIN HCL [Concomitant]
     Route: 065
  13. NYSTATIN [Concomitant]
     Route: 065
  14. OXYCODONE [Concomitant]
     Dosage: 5 - 325 MG, 7.5 - 325 MG FLUCTUATING
     Route: 065
  15. FERROUS SULFATE TAB [Concomitant]
     Route: 065

REACTIONS (3)
  - DRUG EXPOSURE DURING PREGNANCY [None]
  - GESTATIONAL DIABETES [None]
  - TYPE 2 DIABETES MELLITUS [None]
